FAERS Safety Report 19233270 (Version 15)
Quarter: 2024Q2

REPORT INFORMATION
  Report Type: Report from Study
  Country: CA (occurrence: CA)
  Receive Date: 20210507
  Receipt Date: 20240509
  Transmission Date: 20240715
  Serious: Yes (Hospitalization, Disabling, Other)
  Sender: FDA-Public Use
  Company Number: CA-KOREA IPSEN PHARMA-2021-11363

PATIENT
  Age: 57 Year
  Sex: Female
  Weight: 60 kg

DRUGS (5)
  1. LANREOTIDE ACETATE [Suspect]
     Active Substance: LANREOTIDE ACETATE
     Indication: Gastroenteropancreatic neuroendocrine tumour disease
     Dosage: SOMATULINE 120MG/0.5ML
     Route: 058
     Dates: start: 20200313
  2. LANREOTIDE ACETATE [Suspect]
     Active Substance: LANREOTIDE ACETATE
     Route: 058
     Dates: start: 20210602
  3. LANREOTIDE ACETATE [Suspect]
     Active Substance: LANREOTIDE ACETATE
     Dosage: DOSE INCREASED
     Route: 058
  4. EVEROLIMUS [Suspect]
     Active Substance: EVEROLIMUS
     Indication: Constipation
     Route: 065
  5. DICLOFENAC POTASSIUM\METAXALONE [Suspect]
     Active Substance: DICLOFENAC POTASSIUM\METAXALONE
     Indication: Pain in extremity
     Dosage: START DATE: 11-APR-2024
     Route: 065

REACTIONS (59)
  - Pelvic neoplasm [Unknown]
  - Metastases to abdominal cavity [Unknown]
  - Malignant neoplasm progression [Unknown]
  - Metastases to spine [Unknown]
  - Metastases to liver [Unknown]
  - Abdominal pain [Recovered/Resolved]
  - Nausea [Recovered/Resolved]
  - Vomiting [Recovered/Resolved]
  - Vena cava thrombosis [Not Recovered/Not Resolved]
  - Haematemesis [Recovered/Resolved]
  - Gastric ulcer [Not Recovered/Not Resolved]
  - Abdominal pain [Recovered/Resolved]
  - Abdominal pain upper [Unknown]
  - Pyelonephritis acute [Unknown]
  - Salpingectomy [Unknown]
  - Oophorectomy [Unknown]
  - Intestinal obstruction [Recovered/Resolved]
  - Renal disorder [Unknown]
  - Abdominal distension [Unknown]
  - Genitourinary tract neoplasm [Unknown]
  - Therapeutic product ineffective [Unknown]
  - Hospitalisation [Unknown]
  - Weight decreased [Unknown]
  - Abdominal pain lower [Unknown]
  - Fatigue [Recovered/Resolved]
  - Pain in extremity [Not Recovered/Not Resolved]
  - Flushing [Unknown]
  - Diarrhoea [Unknown]
  - Asthenia [Unknown]
  - Nausea [Recovering/Resolving]
  - Vomiting [Not Recovered/Not Resolved]
  - Decreased appetite [Recovering/Resolving]
  - Sleep disorder [Unknown]
  - Frequent bowel movements [Unknown]
  - Chest pain [Recovered/Resolved]
  - Diarrhoea [Not Recovered/Not Resolved]
  - Hot flush [Not Recovered/Not Resolved]
  - Pyrexia [Recovered/Resolved]
  - Blood creatinine increased [Not Recovered/Not Resolved]
  - Weight increased [Not Recovered/Not Resolved]
  - Oedema peripheral [Not Recovered/Not Resolved]
  - Injection site discomfort [Unknown]
  - Gastrointestinal disorder [Unknown]
  - Tumour pain [Unknown]
  - Cardiac disorder [Unknown]
  - Back pain [Not Recovered/Not Resolved]
  - Blood creatinine increased [Unknown]
  - Malaise [Unknown]
  - Renal pain [Unknown]
  - Pulmonary pain [Unknown]
  - Abnormal faeces [Unknown]
  - Hypertension [Unknown]
  - Constipation [Not Recovered/Not Resolved]
  - Toxicity to various agents [Unknown]
  - Heart rate increased [Unknown]
  - Wrong technique in product usage process [Unknown]
  - Off label use [Unknown]
  - Drug ineffective [Unknown]
  - Product storage error [Unknown]

NARRATIVE: CASE EVENT DATE: 20210101
